FAERS Safety Report 8048124-4 (Version None)
Quarter: 2012Q1

REPORT INFORMATION
  Report Type: 
  Country: None (occurrence: None)
  Receive Date: 20120112
  Receipt Date: 20120112
  Transmission Date: 20120608
  Serious: No
  Sender: FDA-Public Use
  Company Number: None

PATIENT
  Sex: Male
  Weight: 53.7 kg

DRUGS (3)
  1. TACROLIMUS [Suspect]
  2. TACROLIMUS [Suspect]
     Indication: AUTOIMMUNE DISORDER
     Dosage: 8 MG BID ORAL
     Route: 048
     Dates: start: 20111105
  3. TACROLIMUS [Suspect]
     Indication: GASTROINTESTINAL DISORDER
     Dosage: 8 MG BID ORAL
     Route: 048
     Dates: start: 20111105

REACTIONS (2)
  - IMMUNOSUPPRESSANT DRUG LEVEL DECREASED [None]
  - PRODUCT SUBSTITUTION ISSUE [None]
